FAERS Safety Report 8343979-8 (Version None)
Quarter: 2012Q2

REPORT INFORMATION
  Report Type: 
  Country: None (occurrence: None)
  Receive Date: 20120508
  Receipt Date: 20120501
  Transmission Date: 20120825
  Serious: Yes (Hospitalization)
  Sender: FDA-Public Use
  Company Number: US-BAYER-2012-005347

PATIENT
  Age: 15 Year
  Sex: Female
  Weight: 81.633 kg

DRUGS (13)
  1. NAPROXEN (ALEVE) [Concomitant]
     Dosage: 400 MG, Q4HR
  2. YASMIN [Suspect]
     Dosage: UNK
     Route: 048
     Dates: start: 20081101, end: 20090601
  3. ADDERALL 5 [Concomitant]
     Dosage: UNK
     Dates: start: 20070101
  4. DROSPIRENONE AND ETHINYL ESTRADIOL [Suspect]
     Dosage: UNK
     Dates: start: 20081101, end: 20090601
  5. BUSPAR [Concomitant]
  6. KEFLEX [Concomitant]
     Indication: CELLULITIS
  7. TENEX [Concomitant]
  8. LORTAB [Concomitant]
     Indication: PAIN
     Dosage: 5.0 MG, UNK
  9. ZOLOFT [Concomitant]
     Dosage: UNK
     Dates: start: 20070101
  10. WELLBUTRIN [Concomitant]
     Indication: DEPRESSION
     Dosage: UNK
     Dates: start: 20070101
  11. CLARITIN [Concomitant]
  12. ROCEPHIN [Concomitant]
     Dosage: 1 G, UNK
     Route: 030
  13. MULTI-VITAMIN [Concomitant]

REACTIONS (7)
  - EMOTIONAL DISTRESS [None]
  - DEEP VEIN THROMBOSIS [None]
  - GENERAL PHYSICAL HEALTH DETERIORATION [None]
  - ANXIETY [None]
  - PAIN [None]
  - MENTAL DISORDER [None]
  - INJURY [None]
